FAERS Safety Report 6628488-6 (Version None)
Quarter: 2010Q1

REPORT INFORMATION
  Report Type: 
  Country: None (occurrence: None)
  Receive Date: 20100311
  Receipt Date: 20100303
  Transmission Date: 20100710
  Serious: Yes (Other)
  Sender: FDA-Public Use
  Company Number: BR-JNJFOC-20100301752

PATIENT
  Age: 34 Year
  Sex: Female
  Weight: 56.5 kg

DRUGS (1)
  1. ORTHO EVRA [Suspect]
     Indication: CONTRACEPTION
     Dosage: NORELGESTROMIN 6 MG/ ETHINYL ESTRADIOL 0.6 MG
     Route: 062

REACTIONS (9)
  - APPLICATION SITE PAIN [None]
  - BURNING SENSATION [None]
  - CHEST PAIN [None]
  - DYSPNOEA [None]
  - FLUSHING [None]
  - NAUSEA [None]
  - PRODUCT QUALITY ISSUE [None]
  - PRURITUS [None]
  - TACHYCARDIA [None]
